FAERS Safety Report 7409587-8 (Version None)
Quarter: 2011Q2

REPORT INFORMATION
  Report Type: 
  Country: None (occurrence: None)
  Receive Date: 20110412
  Receipt Date: 20110404
  Transmission Date: 20111010
  Serious: Yes (Disabling)
  Sender: FDA-Public Use
  Company Number: PHHY2011DE27871

PATIENT
  Sex: Male
  Weight: 78 kg

DRUGS (8)
  1. OXCARBAZEPINE [Suspect]
     Indication: EPILEPSY
  2. LAMOTRIGINE [Suspect]
     Indication: EPILEPSY
  3. LYRICA [Suspect]
     Dosage: 450 MG, UNK
     Route: 048
     Dates: start: 20100101
  4. KEPPRA [Suspect]
     Indication: EPILEPSY
     Dosage: 1000 MG, BID
     Route: 048
     Dates: start: 20090101
  5. CARBAMAZEPINE [Suspect]
     Indication: EPILEPSY
  6. LYRICA [Suspect]
     Dosage: 225 MG, BID
     Route: 048
  7. LYRICA [Suspect]
     Indication: EPILEPSY
     Dosage: 50 MG, UNK
     Route: 048
     Dates: start: 20070301, end: 20100101
  8. ERGENYL CHRONO [Suspect]
     Indication: EPILEPSY
     Dosage: 1000 MG, QD
     Route: 048
     Dates: start: 20010101

REACTIONS (2)
  - OPTIC ATROPHY [None]
  - VISUAL ACUITY REDUCED [None]
